FAERS Safety Report 14123929 (Version 2)
Quarter: 2018Q1

REPORT INFORMATION
  Report Type: Report from Study
  Country: JP (occurrence: JP)
  Receive Date: 20171025
  Receipt Date: 20180228
  Transmission Date: 20180508
  Serious: Yes (Death, Hospitalization)
  Sender: FDA-Public Use
  Company Number: JP-ROCHE-1936329

PATIENT

DRUGS (15)
  1. MYCOPHENOLATE MOFETIL. [Suspect]
     Active Substance: MYCOPHENOLATE MOFETIL
     Indication: PROPHYLAXIS AGAINST TRANSPLANT REJECTION
     Route: 065
  2. RITUXIMAB. [Suspect]
     Active Substance: RITUXIMAB
     Indication: PROPHYLAXIS AGAINST TRANSPLANT REJECTION
     Dosage: PER BODY, DAYS -14 AND -1
     Route: 041
  3. MYCOPHENOLATE MOFETIL. [Suspect]
     Active Substance: MYCOPHENOLATE MOFETIL
     Route: 065
  4. CYCLOSPORINE. [Suspect]
     Active Substance: CYCLOSPORINE
     Indication: PROPHYLAXIS AGAINST TRANSPLANT REJECTION
     Dosage: , TARGET AUC0-4 H (TARGET TROUGH) LEVELS WERE 2500-3500 NG H/ML (150-200 NG/ML)
     Route: 065
  5. EVEROLIMUS. [Suspect]
     Active Substance: EVEROLIMUS
     Indication: PROPHYLAXIS AGAINST TRANSPLANT REJECTION
     Dosage: TARGET TROUGH LEVEL 3.0-8.0 NG/ML
     Route: 065
  6. MYCOPHENOLATE MOFETIL. [Suspect]
     Active Substance: MYCOPHENOLATE MOFETIL
     Dosage: ON DAY 14
     Route: 065
  7. METHYLPREDNISOLONE. [Suspect]
     Active Substance: METHYLPREDNISOLONE
     Indication: PROPHYLAXIS AGAINST TRANSPLANT REJECTION
     Route: 042
  8. TACROLIMUS. [Suspect]
     Active Substance: TACROLIMUS
     Indication: PROPHYLAXIS AGAINST TRANSPLANT REJECTION
     Dosage: TARGET TROUGH LEEVEL 80-100 NG H/ML (8-10 NG/ML)
     Route: 065
  9. MIZORIBINE [Suspect]
     Active Substance: MIZORIBINE
     Indication: PROPHYLAXIS AGAINST TRANSPLANT REJECTION
     Dosage: . TARGET TROUGH LEVELS WAS 1.5-2.0 MICROG/ML
     Route: 065
  10. BASILIXIMAB [Suspect]
     Active Substance: BASILIXIMAB
     Indication: PROPHYLAXIS AGAINST TRANSPLANT REJECTION
     Dosage: ON DAY 0 AND 4
     Route: 042
  11. MYCOPHENOLATE MOFETIL. [Suspect]
     Active Substance: MYCOPHENOLATE MOFETIL
     Route: 065
  12. PREDNISOLONE. [Suspect]
     Active Substance: PREDNISOLONE
     Indication: PROPHYLAXIS AGAINST TRANSPLANT REJECTION
     Dosage: ON DAY 0
     Route: 065
  13. PREDNISOLONE. [Suspect]
     Active Substance: PREDNISOLONE
     Dosage: ON DAY 19
     Route: 065
  14. PREDNISOLONE. [Suspect]
     Active Substance: PREDNISOLONE
     Dosage: 5.0-7.5 MG/DAY FOR 3 MONTHS AFTER TRANSPLANTATION
     Route: 065
  15. PREDNISOLONE. [Suspect]
     Active Substance: PREDNISOLONE
     Dosage: ON DAY 0
     Route: 065

REACTIONS (14)
  - Pneumocystis jirovecii pneumonia [Fatal]
  - Cytomegalovirus infection [Unknown]
  - Pneumonia bacterial [Unknown]
  - Urinary tract infection [Unknown]
  - Soft tissue infection [Unknown]
  - Adenovirus infection [Unknown]
  - Infection [Unknown]
  - Sepsis [Fatal]
  - Bacterial infection [Unknown]
  - Cellulitis [Unknown]
  - Neoplasm malignant [Fatal]
  - Varicella zoster virus infection [Unknown]
  - Polyomavirus-associated nephropathy [Unknown]
  - Cardiovascular disorder [Fatal]
